FAERS Safety Report 16731265 (Version 1)
Quarter: 2019Q3

REPORT INFORMATION
  Report Type: Spontaneous
  Country: CN (occurrence: CN)
  Receive Date: 20190822
  Receipt Date: 20190822
  Transmission Date: 20191005
  Serious: Yes (Other)
  Sender: FDA-Public Use
  Company Number: CN-OTSUKA-2019_029660

PATIENT

DRUGS (12)
  1. METHYL CCNU [Suspect]
     Active Substance: SEMUSTINE
     Indication: BONE MARROW CONDITIONING REGIMEN
     Dosage: 250 MG/M2, (ON DAY -3)
     Route: 065
     Dates: start: 2008
  2. CYTARABINE. [Suspect]
     Active Substance: CYTARABINE
     Indication: ACUTE LYMPHOCYTIC LEUKAEMIA
  3. CYCLOPHOSPHAMIDE. [Suspect]
     Active Substance: CYCLOPHOSPHAMIDE
     Indication: ACUTE LYMPHOCYTIC LEUKAEMIA
  4. CYTARABINE. [Suspect]
     Active Substance: CYTARABINE
     Indication: BONE MARROW CONDITIONING REGIMEN
     Dosage: 4 G/M2, (ON DAY -10 TO -9)
     Route: 065
     Dates: start: 2008
  5. DEXAMETHASONE. [Suspect]
     Active Substance: DEXAMETHASONE
     Indication: PRODUCT USED FOR UNKNOWN INDICATION
     Dosage: UNK (FOR ONE YEAR)
     Route: 065
  6. BUSULFAN. [Suspect]
     Active Substance: BUSULFAN
     Indication: ACUTE LYMPHOCYTIC LEUKAEMIA
  7. BUSULFAN. [Suspect]
     Active Substance: BUSULFAN
     Indication: BONE MARROW CONDITIONING REGIMEN
     Dosage: 9.6 MG/KG, (ON DAY -8 TO -6)
     Route: 065
     Dates: start: 2008
  8. ANTITHYMOCYTE IMMUNOGLOBULIN [Suspect]
     Active Substance: THYMOCYTE IMMUNE GLOBULIN NOS
     Indication: ACUTE LYMPHOCYTIC LEUKAEMIA
  9. CYCLOPHOSPHAMIDE. [Suspect]
     Active Substance: CYCLOPHOSPHAMIDE
     Indication: BONE MARROW CONDITIONING REGIMEN
     Dosage: 3.6 G/M2, (ON DAY -5 TO -4)
     Route: 065
     Dates: start: 2008
  10. ANTITHYMOCYTE IMMUNOGLOBULIN [Suspect]
     Active Substance: THYMOCYTE IMMUNE GLOBULIN NOS
     Indication: BONE MARROW CONDITIONING REGIMEN
     Dosage: 10 MG/KG, (ON DAY -5 TO -2)
     Route: 065
  11. METHYL CCNU [Suspect]
     Active Substance: SEMUSTINE
     Indication: ACUTE LYMPHOCYTIC LEUKAEMIA
  12. CYCLOSPORIN A [Suspect]
     Active Substance: CYCLOSPORINE
     Indication: PRODUCT USED FOR UNKNOWN INDICATION
     Dosage: UNK (FOR 06 MONTH)
     Route: 065

REACTIONS (2)
  - Product use in unapproved indication [Unknown]
  - Premature menopause [Unknown]
